FAERS Safety Report 15012228 (Version 1)
Quarter: 2018Q2

REPORT INFORMATION
  Report Type: Spontaneous
  Country: US (occurrence: US)
  Receive Date: 20180614
  Receipt Date: 20180614
  Transmission Date: 20180711
  Serious: Yes (Life-Threatening, Hospitalization, Disabling)
  Sender: FDA-Public Use
  Company Number: US-JNJFOC-20180613529

PATIENT
  Age: 83 Year
  Sex: Male

DRUGS (1)
  1. INVOKANA [Suspect]
     Active Substance: CANAGLIFLOZIN
     Indication: TYPE 2 DIABETES MELLITUS
     Route: 048
     Dates: start: 20140828, end: 201705

REACTIONS (6)
  - Diabetic hyperosmolar coma [Unknown]
  - Acute kidney injury [Unknown]
  - Osteomyelitis chronic [Unknown]
  - Leg amputation [Unknown]
  - Dry gangrene [Unknown]
  - Diabetic ketoacidosis [Unknown]

NARRATIVE: CASE EVENT DATE: 20170518
